FAERS Safety Report 19818241 (Version 1)
Quarter: 2021Q3

REPORT INFORMATION
  Report Type: Spontaneous
  Country: CA (occurrence: CA)
  Receive Date: 20210911
  Receipt Date: 20210911
  Transmission Date: 20211014
  Serious: Yes (Life-Threatening, Other)
  Sender: FDA-Public Use
  Company Number: CA-TEVA-2021-CA-1950469

PATIENT
  Age: 1 Year
  Sex: Male

DRUGS (28)
  1. LORAZEPAM. [Concomitant]
     Active Substance: LORAZEPAM
  2. ZINC. [Concomitant]
     Active Substance: ZINC
  3. DAUNOMYCIN [Suspect]
     Active Substance: DAUNORUBICIN
     Indication: ACUTE MYELOID LEUKAEMIA
     Route: 065
  4. ETOPOSIDE. [Suspect]
     Active Substance: ETOPOSIDE
     Indication: ACUTE MYELOID LEUKAEMIA
     Route: 065
  5. CYTARABINE INJECTION [Suspect]
     Active Substance: CYTARABINE
     Indication: ACUTE MYELOID LEUKAEMIA
     Route: 065
  6. ALTEPLASE. [Concomitant]
     Active Substance: ALTEPLASE
  7. HEPARIN CALCIUM [Concomitant]
     Active Substance: HEPARIN CALCIUM
     Route: 065
  8. POLYETHYLENE GLYCOL [Concomitant]
     Active Substance: POLYETHYLENE GLYCOLS
  9. ALLOPURINOL. [Concomitant]
     Active Substance: ALLOPURINOL
  10. CETIRIZINE [Concomitant]
     Active Substance: CETIRIZINE HYDROCHLORIDE
  11. CIPROFLOXACIN. [Concomitant]
     Active Substance: CIPROFLOXACIN
  12. METOCLOPRAMIDE. [Concomitant]
     Active Substance: METOCLOPRAMIDE
  13. MORPHINE SULFATE. [Concomitant]
     Active Substance: MORPHINE SULFATE
  14. SULFAMETHOXAZOLE AND TRIMETHOPRIM [Concomitant]
     Active Substance: SULFAMETHOXAZOLE\TRIMETHOPRIM
     Route: 065
  15. VANCOMYCIN [Concomitant]
     Active Substance: VANCOMYCIN
  16. DIPHENHYDRAMINE. [Concomitant]
     Active Substance: DIPHENHYDRAMINE
  17. MYCAMINE [Concomitant]
     Active Substance: MICAFUNGIN SODIUM
  18. ONDANSETRON [Concomitant]
     Active Substance: ONDANSETRON
  19. PREDNISONE. [Concomitant]
     Active Substance: PREDNISONE
  20. DIMENHYDRINATE. [Concomitant]
     Active Substance: DIMENHYDRINATE
  21. METRONIDAZOLE. [Concomitant]
     Active Substance: METRONIDAZOLE
  22. RANITIDINE. [Concomitant]
     Active Substance: RANITIDINE
  23. FLUCONAZOLE. [Concomitant]
     Active Substance: FLUCONAZOLE
  24. METHYLPREDNISOLONE. [Concomitant]
     Active Substance: METHYLPREDNISOLONE
  25. MITOXANTRONE [Suspect]
     Active Substance: MITOXANTRONE HYDROCHLORIDE
     Indication: ACUTE MYELOID LEUKAEMIA
     Route: 065
  26. ACETAMINOPHEN. [Concomitant]
     Active Substance: ACETAMINOPHEN
  27. FUROSEMIDE. [Concomitant]
     Active Substance: FUROSEMIDE
     Route: 065
  28. MEROPENEM. [Concomitant]
     Active Substance: MEROPENEM

REACTIONS (5)
  - Platelet count decreased [Unknown]
  - Product use issue [Unknown]
  - Bacteraemia [Unknown]
  - Aplastic anaemia [Unknown]
  - Febrile neutropenia [Unknown]
